FAERS Safety Report 22129605 (Version 1)
Quarter: 2023Q1

REPORT INFORMATION
  Report Type: Spontaneous
  Country: US (occurrence: None)
  Receive Date: 20230322
  Receipt Date: 20230322
  Transmission Date: 20230417
  Serious: No
  Sender: FDA-Public Use
  Company Number: None

PATIENT
  Age: 58 Year
  Sex: Female
  Weight: 60.75 kg

DRUGS (5)
  1. HYDROXYCHLOROQUINE [Suspect]
     Active Substance: HYDROXYCHLOROQUINE
     Indication: Systemic lupus erythematosus
     Dosage: OTHER QUANTITY : 2 TABLET(S);?FREQUENCY : AT BEDTIME;?
     Route: 048
     Dates: start: 20230215, end: 20230322
  2. Bupropion SR 450 mg/day [Concomitant]
  3. modafinil 200 mg/day [Concomitant]
  4. hydroxychloroquine 400 mg/day [Concomitant]
  5. fosamax q week [Concomitant]

REACTIONS (8)
  - Product substitution issue [None]
  - Nausea [None]
  - Abdominal discomfort [None]
  - Systemic lupus erythematosus [None]
  - Condition aggravated [None]
  - Eye irritation [None]
  - Skin lesion [None]
  - Therapeutic product effect decreased [None]

NARRATIVE: CASE EVENT DATE: 20230220
